FAERS Safety Report 4920676-X (Version None)
Quarter: 2006Q1

REPORT INFORMATION
  Report Type: 
  Country: None (occurrence: None)
  Receive Date: 20060216
  Receipt Date: 20060126
  Transmission Date: 20060701
  Serious: Yes (Hospitalization)
  Sender: FDA-Public Use
  Company Number: JP200602001444

PATIENT
  Age: 21 Year
  Sex: Male
  Weight: 60 kg

DRUGS (7)
  1. OLANZAPINE [Suspect]
     Indication: SCHIZOPHRENIA
     Dosage: 10 MG, DAILY (1/D), ORAL; 20 MG, DAILY (1/D), ORAL
     Route: 048
     Dates: start: 20040510, end: 20040606
  2. OLANZAPINE [Suspect]
     Indication: SCHIZOPHRENIA
     Dosage: 10 MG, DAILY (1/D), ORAL; 20 MG, DAILY (1/D), ORAL
     Route: 048
     Dates: start: 20040607
  3. RISPERDAL [Concomitant]
  4. AKINETON [Concomitant]
  5. VEGETAMIN B [Concomitant]
  6. ROHYPNOL (FLUNITRAZEPAM) [Concomitant]
  7. BROTIZOLAM (BROTIZOLAM) [Concomitant]

REACTIONS (3)
  - CONDITION AGGRAVATED [None]
  - INSOMNIA [None]
  - SCHIZOPHRENIA [None]
